FAERS Safety Report 15650603 (Version 4)
Quarter: 2022Q1

REPORT INFORMATION
  Report Type: Report from Study
  Country: JP (occurrence: JP)
  Receive Date: 20181123
  Receipt Date: 20220208
  Transmission Date: 20220423
  Serious: Yes (Hospitalization, Other)
  Sender: FDA-Public Use
  Company Number: JP-TAKEDA-2017TJP005695

PATIENT
  Age: 78 Year
  Sex: Male
  Weight: 62.7 kg

DRUGS (58)
  1. PANITUMUMAB [Suspect]
     Active Substance: PANITUMUMAB
     Indication: Colon cancer
     Dosage: 370 MILLIGRAM, Q2WK
     Route: 041
     Dates: start: 20170112, end: 20170126
  2. PANITUMUMAB [Suspect]
     Active Substance: PANITUMUMAB
     Dosage: 370 MILLIGRAM, Q2WK
     Route: 041
     Dates: start: 20170220, end: 20170703
  3. PANITUMUMAB [Suspect]
     Active Substance: PANITUMUMAB
     Dosage: 370 MILLIGRAM, Q2WK
     Route: 041
     Dates: start: 20170731, end: 20170821
  4. PANITUMUMAB [Suspect]
     Active Substance: PANITUMUMAB
     Dosage: 370 MILLIGRAM, Q2WK
     Route: 041
     Dates: start: 20170925, end: 20171106
  5. PANITUMUMAB [Suspect]
     Active Substance: PANITUMUMAB
     Dosage: 370 MILLIGRAM, Q2WK
     Route: 041
     Dates: start: 20171204, end: 20171225
  6. PANITUMUMAB [Suspect]
     Active Substance: PANITUMUMAB
     Dosage: 370 MILLIGRAM, Q2WK
     Route: 041
     Dates: start: 20180122, end: 20180122
  7. PANITUMUMAB [Suspect]
     Active Substance: PANITUMUMAB
     Dosage: 370 MILLIGRAM, Q2WK
     Route: 041
     Dates: start: 20180219, end: 20180305
  8. PANITUMUMAB [Suspect]
     Active Substance: PANITUMUMAB
     Dosage: 370 MILLIGRAM, Q2WK
     Route: 041
     Dates: start: 20180402, end: 20180402
  9. PANITUMUMAB [Suspect]
     Active Substance: PANITUMUMAB
     Dosage: 370 MILLIGRAM, Q2WK
     Route: 041
     Dates: start: 20180507, end: 20180507
  10. PANITUMUMAB [Suspect]
     Active Substance: PANITUMUMAB
     Dosage: 4.8 MILLIGRAM/KILOGRAM, Q2WK
     Route: 041
     Dates: start: 20180618, end: 20180702
  11. PANITUMUMAB [Suspect]
     Active Substance: PANITUMUMAB
     Dosage: 4.8 MILLIGRAM/KILOGRAM, Q2WK
     Route: 041
     Dates: start: 20180730, end: 20180730
  12. PANITUMUMAB [Suspect]
     Active Substance: PANITUMUMAB
     Dosage: 4.8 MILLIGRAM/KILOGRAM, Q2WK
     Route: 041
     Dates: start: 20180903, end: 20180903
  13. PANITUMUMAB [Suspect]
     Active Substance: PANITUMUMAB
     Dosage: 4.8 MILLIGRAM/KILOGRAM, Q2WK
     Route: 041
     Dates: start: 20181015, end: 20181015
  14. PANITUMUMAB [Suspect]
     Active Substance: PANITUMUMAB
     Dosage: UNK
     Route: 041
     Dates: start: 20181119
  15. PANITUMUMAB [Suspect]
     Active Substance: PANITUMUMAB
     Dosage: UNK
     Route: 041
     Dates: start: 20210927
  16. OXALIPLATIN [Concomitant]
     Active Substance: OXALIPLATIN
     Indication: Colon cancer
     Dosage: 140 MILLIGRAM, Q2WK
     Route: 041
     Dates: start: 20170112, end: 20170126
  17. OXALIPLATIN [Concomitant]
     Active Substance: OXALIPLATIN
     Dosage: 65 MILLIGRAM/SQ. METER, Q2WK
     Route: 041
     Dates: start: 20170220, end: 20170703
  18. OXALIPLATIN [Concomitant]
     Active Substance: OXALIPLATIN
     Dosage: 65 MILLIGRAM/SQ. METER, Q2WEEKS
     Route: 041
     Dates: start: 20170731, end: 20170821
  19. OXALIPLATIN [Concomitant]
     Active Substance: OXALIPLATIN
     Dosage: 50 MILLIGRAM/SQ. METER, Q2WEEKS
     Route: 041
     Dates: start: 20170925, end: 20170925
  20. LEVOLEUCOVORIN CALCIUM [Concomitant]
     Active Substance: LEVOLEUCOVORIN CALCIUM
     Indication: Colon cancer
     Dosage: 336 MILLIGRAM, Q2WK
     Route: 041
     Dates: start: 20170112, end: 20170126
  21. LEVOLEUCOVORIN CALCIUM [Concomitant]
     Active Substance: LEVOLEUCOVORIN CALCIUM
     Dosage: 336 MILLIGRAM, Q2WEEKS
     Route: 041
     Dates: start: 20170220, end: 20170703
  22. LEVOLEUCOVORIN CALCIUM [Concomitant]
     Active Substance: LEVOLEUCOVORIN CALCIUM
     Dosage: 336 MILLIGRAM, Q2WEEKS
     Route: 041
     Dates: start: 20170731, end: 20170821
  23. LEVOLEUCOVORIN CALCIUM [Concomitant]
     Active Substance: LEVOLEUCOVORIN CALCIUM
     Dosage: 336 MILLIGRAM, Q2WEEKS
     Route: 041
     Dates: start: 20170925, end: 20171106
  24. LEVOLEUCOVORIN CALCIUM [Concomitant]
     Active Substance: LEVOLEUCOVORIN CALCIUM
     Dosage: 336 MILLIGRAM, Q2WEEKS
     Route: 041
     Dates: start: 20171204, end: 20171225
  25. LEVOLEUCOVORIN CALCIUM [Concomitant]
     Active Substance: LEVOLEUCOVORIN CALCIUM
     Dosage: 336 MILLIGRAM, Q2WEEKS
     Route: 041
     Dates: start: 20180122, end: 20180122
  26. LEVOLEUCOVORIN CALCIUM [Concomitant]
     Active Substance: LEVOLEUCOVORIN CALCIUM
     Dosage: 336 MILLIGRAM, Q2WEEKS
     Route: 041
     Dates: start: 20180219, end: 20180305
  27. LEVOLEUCOVORIN CALCIUM [Concomitant]
     Active Substance: LEVOLEUCOVORIN CALCIUM
     Dosage: 336 MILLIGRAM, Q2WEEKS
     Route: 041
     Dates: start: 20180402, end: 20180507
  28. LEVOLEUCOVORIN CALCIUM [Concomitant]
     Active Substance: LEVOLEUCOVORIN CALCIUM
     Dosage: 336 MILLIGRAM, Q2WEEKS
     Route: 041
     Dates: start: 20180604, end: 20180702
  29. LEVOLEUCOVORIN CALCIUM [Concomitant]
     Active Substance: LEVOLEUCOVORIN CALCIUM
     Dosage: 336 MILLIGRAM, Q2WEEKS
     Route: 041
     Dates: start: 20180730, end: 20180730
  30. LEVOLEUCOVORIN CALCIUM [Concomitant]
     Active Substance: LEVOLEUCOVORIN CALCIUM
     Dosage: 336 MILLIGRAM, Q2WEEKS
     Route: 041
     Dates: start: 20180903, end: 20180903
  31. LEVOLEUCOVORIN CALCIUM [Concomitant]
     Active Substance: LEVOLEUCOVORIN CALCIUM
     Dosage: 336 MILLIGRAM, Q2WEEKS
     Route: 041
     Dates: start: 20181015, end: 20181015
  32. FLUOROURACIL [Concomitant]
     Active Substance: FLUOROURACIL
     Indication: Colon cancer
     Dosage: 650 MILLIGRAM, Q2WK
     Route: 040
     Dates: start: 20170112, end: 20170126
  33. FLUOROURACIL [Concomitant]
     Active Substance: FLUOROURACIL
     Dosage: 4000 MILLIGRAM, Q2WK
     Route: 041
     Dates: start: 20170112, end: 20170126
  34. FLUOROURACIL [Concomitant]
     Active Substance: FLUOROURACIL
     Dosage: 200 MILLIGRAM/SQ. METER, Q2WK
     Route: 040
     Dates: start: 20170220, end: 20170703
  35. FLUOROURACIL [Concomitant]
     Active Substance: FLUOROURACIL
     Dosage: 1254 MILLIGRAM/SQ. METER, Q2WK
     Route: 041
     Dates: start: 20170220, end: 20170306
  36. FLUOROURACIL [Concomitant]
     Active Substance: FLUOROURACIL
     Dosage: 200 MILLIGRAM/SQ. METER, Q2WK
     Route: 041
     Dates: start: 20170328, end: 20170703
  37. FLUOROURACIL [Concomitant]
     Active Substance: FLUOROURACIL
     Dosage: 200 MILLIGRAM/SQ. METER, Q2WK
     Route: 040
     Dates: start: 20170731, end: 20170821
  38. FLUOROURACIL [Concomitant]
     Active Substance: FLUOROURACIL
     Dosage: 2000 MILLIGRAM/SQ. METER, Q2WK
     Route: 041
     Dates: start: 20170731, end: 20170821
  39. FLUOROURACIL [Concomitant]
     Active Substance: FLUOROURACIL
     Dosage: 200 MILLIGRAM/SQ. METER, Q2WK
     Route: 040
     Dates: start: 20170925, end: 20171106
  40. FLUOROURACIL [Concomitant]
     Active Substance: FLUOROURACIL
     Dosage: 2000 MILLIGRAM/SQ. METER, Q2WK
     Route: 041
     Dates: start: 20171204, end: 20171225
  41. FLUOROURACIL [Concomitant]
     Active Substance: FLUOROURACIL
     Dosage: 200 MILLIGRAM/SQ. METER, Q2WK
     Route: 040
     Dates: start: 20171204, end: 20171225
  42. FLUOROURACIL [Concomitant]
     Active Substance: FLUOROURACIL
     Dosage: 200 MILLIGRAM/SQ. METER, Q2WK
     Route: 040
     Dates: start: 20180122, end: 20180122
  43. FLUOROURACIL [Concomitant]
     Active Substance: FLUOROURACIL
     Dosage: 2000 MILLIGRAM/SQ. METER, Q2WK
     Route: 041
     Dates: start: 20180122, end: 20180122
  44. FLUOROURACIL [Concomitant]
     Active Substance: FLUOROURACIL
     Dosage: 200 MILLIGRAM/SQ. METER, Q2WK
     Route: 040
     Dates: start: 20180219, end: 20180305
  45. FLUOROURACIL [Concomitant]
     Active Substance: FLUOROURACIL
     Dosage: 2000 MILLIGRAM/SQ. METER, Q2WK
     Route: 041
     Dates: start: 20180219, end: 20180305
  46. FLUOROURACIL [Concomitant]
     Active Substance: FLUOROURACIL
     Dosage: 200 MILLIGRAM/SQ. METER, Q2WK
     Route: 040
     Dates: start: 20180402, end: 20180507
  47. FLUOROURACIL [Concomitant]
     Active Substance: FLUOROURACIL
     Dosage: 2000 MILLIGRAM/SQ. METER, Q2WK
     Route: 041
     Dates: start: 20180402, end: 20180507
  48. FLUOROURACIL [Concomitant]
     Active Substance: FLUOROURACIL
     Dosage: 200 MILLIGRAM/SQ. METER, Q2WK
     Route: 040
     Dates: start: 20180604, end: 20180702
  49. FLUOROURACIL [Concomitant]
     Active Substance: FLUOROURACIL
     Dosage: 2000 MILLIGRAM/SQ. METER, Q2WK
     Route: 041
     Dates: start: 20180604, end: 20180702
  50. FLUOROURACIL [Concomitant]
     Active Substance: FLUOROURACIL
     Dosage: 200 MILLIGRAM/SQ. METER, Q2WK
     Route: 040
     Dates: start: 20180730, end: 20180730
  51. FLUOROURACIL [Concomitant]
     Active Substance: FLUOROURACIL
     Dosage: 2000 MILLIGRAM/SQ. METER, Q2WK
     Route: 041
     Dates: start: 20180730, end: 20180730
  52. FLUOROURACIL [Concomitant]
     Active Substance: FLUOROURACIL
     Dosage: 200 MILLIGRAM/SQ. METER, Q2WK
     Route: 040
     Dates: start: 20180903, end: 20180903
  53. FLUOROURACIL [Concomitant]
     Active Substance: FLUOROURACIL
     Dosage: 2000 MILLIGRAM/SQ. METER, Q2WK
     Route: 041
     Dates: start: 20180903, end: 20180903
  54. FLUOROURACIL [Concomitant]
     Active Substance: FLUOROURACIL
     Dosage: 200 MILLIGRAM/SQ. METER, Q2WK
     Route: 040
     Dates: start: 20181015, end: 20181015
  55. FLUOROURACIL [Concomitant]
     Active Substance: FLUOROURACIL
     Dosage: 2000 MILLIGRAM/SQ. METER, Q2WK
     Route: 041
     Dates: start: 20181015, end: 20181015
  56. FLUOROURACIL [Concomitant]
     Active Substance: FLUOROURACIL
     Dosage: UNK
     Route: 040
     Dates: start: 20181119
  57. BETAMETHASONE DIPROPIONATE [Concomitant]
     Active Substance: BETAMETHASONE DIPROPIONATE
     Indication: Rash
     Dosage: UNK
     Route: 062
  58. GLYCOSAMINOGLYCANS [Concomitant]
     Active Substance: GLYCOSAMINOGLYCANS
     Indication: Rash
     Dosage: UNK
     Route: 062

REACTIONS (15)
  - Bile duct stone [Recovering/Resolving]
  - Peripheral sensory neuropathy [Recovered/Resolved]
  - Hypomagnesaemia [Recovered/Resolved]
  - Dermatitis acneiform [Recovered/Resolved]
  - Dermatitis acneiform [Recovered/Resolved]
  - Dermatitis acneiform [Recovered/Resolved]
  - Hypomagnesaemia [Recovered/Resolved]
  - Dermatitis acneiform [Recovered/Resolved]
  - Diarrhoea [Recovered/Resolved]
  - Nausea [Recovered/Resolved]
  - Stomatitis [Recovered/Resolved]
  - Fatigue [Recovered/Resolved]
  - Diarrhoea [Recovered/Resolved]
  - Fatigue [Recovered/Resolved]
  - Fatigue [Recovered/Resolved]

NARRATIVE: CASE EVENT DATE: 20180604
